FAERS Safety Report 21300275 (Version 1)
Quarter: 2022Q3

REPORT INFORMATION
  Report Type: Spontaneous
  Country: US (occurrence: US)
  Receive Date: 20220906
  Receipt Date: 20220906
  Transmission Date: 20221027
  Serious: No
  Sender: FDA-Public Use
  Company Number: None

PATIENT
  Age: 46 Year
  Sex: Male

DRUGS (12)
  1. SERTRALINE [Suspect]
     Active Substance: SERTRALINE HYDROCHLORIDE
     Indication: Aggression
     Dosage: 50 MG, QD
     Route: 048
     Dates: start: 2020
  2. ZIPRASIDONE [Concomitant]
     Active Substance: ZIPRASIDONE
     Indication: Aggression
     Dosage: 40 MG, BID (EVERY 12-HOUR)
     Route: 065
     Dates: start: 2020
  3. QUETIAPINE [Concomitant]
     Active Substance: QUETIAPINE
     Indication: Aggression
     Dosage: 100 MG, QD (AT BEDTIME)
     Route: 065
     Dates: start: 2020
  4. HALOPERIDOL DECANOATE [Concomitant]
     Active Substance: HALOPERIDOL DECANOATE
     Dosage: 300 MILLIGRAM (MONTHLY)
     Route: 030
     Dates: start: 2020, end: 202011
  5. VALPROIC ACID [Concomitant]
     Active Substance: VALPROIC ACID
     Indication: Aggression
     Dosage: 500 MG, TID
     Route: 065
     Dates: start: 2020
  6. VALPROIC ACID [Concomitant]
     Active Substance: VALPROIC ACID
     Dosage: UNK UNK, BID (500 MG AT BREAKFAST AND LUNCH AND 1000 MG AT BEDTIME)
     Route: 065
     Dates: start: 2020, end: 202011
  7. VALPROIC ACID [Concomitant]
     Active Substance: VALPROIC ACID
     Dosage: UNK UNK, BID (500 MG AT BREAKFAST AND LUNCH AND 1000 MG AT BEDTIME)
     Route: 065
     Dates: start: 202011, end: 2020
  8. ALPRAZOLAM [Concomitant]
     Active Substance: ALPRAZOLAM
     Indication: Aggression
     Dosage: 1 MILLIGRAM, QID (EVERY 6 HOURS)
     Route: 065
     Dates: start: 2020, end: 202011
  9. TROPINE BENZYLATE [Concomitant]
     Active Substance: TROPINE BENZYLATE
     Indication: Tremor
     Dosage: 0.5 MG, QD (24-HOUR)
     Route: 065
     Dates: start: 2020
  10. LORAZEPAM [Concomitant]
     Active Substance: LORAZEPAM
     Indication: Aggression
     Dosage: 1 MG, TID
     Route: 065
     Dates: start: 202011, end: 2020
  11. LORAZEPAM [Concomitant]
     Active Substance: LORAZEPAM
     Dosage: 0.5 MG, TID (EVERY 08-HOUR)
     Route: 065
     Dates: start: 2020
  12. METHADONE [Concomitant]
     Active Substance: METHADONE HYDROCHLORIDE
     Indication: Drug use disorder
     Dosage: UNK
     Route: 065
     Dates: start: 2020

REACTIONS (1)
  - Hyponatraemia [Unknown]
